FAERS Safety Report 16810792 (Version 1)
Quarter: 2019Q4

REPORT INFORMATION
  Report Type: Spontaneous
  Country: US (occurrence: US)
  Receive Date: 20190916
  Receipt Date: 20190916
  Transmission Date: 20200122
  Serious: No
  Sender: FDA-Public Use
  Company Number: None

PATIENT
  Age: 47 Year
  Sex: Male

DRUGS (9)
  1. CELEBREX [Concomitant]
     Active Substance: CELECOXIB
  2. TIZANIDINE. [Concomitant]
     Active Substance: TIZANIDINE
  3. TRAMADOL. [Concomitant]
     Active Substance: TRAMADOL
  4. CIMZIA [Suspect]
     Active Substance: CERTOLIZUMAB PEGOL
     Dosage: ?          OTHER FREQUENCY:Q4WEEKS;?
     Route: 058
  5. GABAPENTIN. [Concomitant]
     Active Substance: GABAPENTIN
  6. DICLOFENAC 50MG [Concomitant]
  7. CYMBALTA [Concomitant]
     Active Substance: DULOXETINE HYDROCHLORIDE
  8. CYCLOBENZAPRINE. [Concomitant]
     Active Substance: CYCLOBENZAPRINE
  9. LOSARTAN. [Concomitant]
     Active Substance: LOSARTAN

REACTIONS (2)
  - Rash [None]
  - Oral mucosal blistering [None]

NARRATIVE: CASE EVENT DATE: 20190916
